FAERS Safety Report 20630553 (Version 2)
Quarter: 2022Q2

REPORT INFORMATION
  Report Type: Spontaneous
  Country: CA (occurrence: CA)
  Receive Date: 20220324
  Receipt Date: 20220423
  Transmission Date: 20220721
  Serious: Yes (Other)
  Sender: FDA-Public Use
  Company Number: CA-CELLTRION INC.-2020CA021256

PATIENT

DRUGS (52)
  1. INFLECTRA [Suspect]
     Active Substance: INFLIXIMAB-DYYB
     Indication: Crohn^s disease
     Dosage: 500 MG, EVERY 4 WEEKS
     Route: 042
     Dates: start: 20200130, end: 20200619
  2. INFLECTRA [Suspect]
     Active Substance: INFLIXIMAB-DYYB
     Dosage: 500 MG
     Route: 042
     Dates: start: 20200228
  3. INFLECTRA [Suspect]
     Active Substance: INFLIXIMAB-DYYB
     Dosage: 500 MG
     Route: 042
     Dates: start: 20200228
  4. INFLECTRA [Suspect]
     Active Substance: INFLIXIMAB-DYYB
     Dosage: 500 MG
     Route: 042
     Dates: start: 20200329
  5. INFLECTRA [Suspect]
     Active Substance: INFLIXIMAB-DYYB
     Dosage: 500 MG
     Route: 042
     Dates: start: 20200522
  6. INFLECTRA [Suspect]
     Active Substance: INFLIXIMAB-DYYB
     Dosage: 500 MG, EVERY 4 WEEKS
     Route: 042
     Dates: start: 20200619
  7. INFLECTRA [Suspect]
     Active Substance: INFLIXIMAB-DYYB
     Dosage: 5 MG/KG (EVERY 4 WEEKS)
     Route: 042
     Dates: start: 20200722
  8. INFLECTRA [Suspect]
     Active Substance: INFLIXIMAB-DYYB
     Dosage: 5 MG/KG (EVERY 4 WEEKS)
     Route: 042
     Dates: start: 20200814
  9. INFLECTRA [Suspect]
     Active Substance: INFLIXIMAB-DYYB
     Dosage: 5 MG/KG (EVERY 4 WEEKS)
     Route: 042
     Dates: start: 20200911
  10. INFLECTRA [Suspect]
     Active Substance: INFLIXIMAB-DYYB
     Dosage: 5 MG/KG (EVERY 4 WEEKS)
     Route: 042
     Dates: start: 20201009
  11. INFLECTRA [Suspect]
     Active Substance: INFLIXIMAB-DYYB
     Dosage: 5 MG/KG (EVERY 4 WEEKS)
     Route: 042
     Dates: start: 20201106
  12. INFLECTRA [Suspect]
     Active Substance: INFLIXIMAB-DYYB
     Dosage: 5 MG/KG (EVERY 4 WEEKS)
     Route: 042
     Dates: start: 20201204
  13. INFLECTRA [Suspect]
     Active Substance: INFLIXIMAB-DYYB
     Dosage: 5 MG/KG (EVERY 4 WEEKS)
     Route: 042
     Dates: start: 20210108
  14. INFLECTRA [Suspect]
     Active Substance: INFLIXIMAB-DYYB
     Dosage: 5 MG/KG (EVERY 4 WEEKS)
     Route: 042
     Dates: start: 20210205
  15. INFLECTRA [Suspect]
     Active Substance: INFLIXIMAB-DYYB
     Dosage: 5 MG/KG (EVERY 4 WEEKS)
     Route: 042
     Dates: start: 20210305
  16. INFLECTRA [Suspect]
     Active Substance: INFLIXIMAB-DYYB
     Dosage: 5 MG/KG (EVERY 4 WEEKS)
     Route: 042
     Dates: start: 20210409
  17. INFLECTRA [Suspect]
     Active Substance: INFLIXIMAB-DYYB
     Dosage: 5 MG/KG (EVERY 4 WEEKS)
     Route: 042
     Dates: start: 20210604
  18. INFLECTRA [Suspect]
     Active Substance: INFLIXIMAB-DYYB
     Dosage: 5 MG/KG (EVERY 4 WEEKS)
     Route: 042
     Dates: start: 20210702
  19. INFLECTRA [Suspect]
     Active Substance: INFLIXIMAB-DYYB
     Dosage: 5 MG/KG (EVERY 4 WEEKS)
     Route: 042
     Dates: start: 20210730
  20. INFLECTRA [Suspect]
     Active Substance: INFLIXIMAB-DYYB
     Dosage: 5 MG/KG (EVERY 4 WEEKS)
     Route: 042
     Dates: start: 20210827
  21. INFLECTRA [Suspect]
     Active Substance: INFLIXIMAB-DYYB
     Dosage: 5 MG/KG (EVERY 4 WEEKS)
     Route: 042
     Dates: start: 20210924
  22. INFLECTRA [Suspect]
     Active Substance: INFLIXIMAB-DYYB
     Dosage: 5 MG/KG (EVERY 4 WEEKS)
     Route: 042
     Dates: start: 20211022
  23. INFLECTRA [Suspect]
     Active Substance: INFLIXIMAB-DYYB
     Dosage: 5 MG/KG (EVERY 4 WEEKS)
     Route: 042
     Dates: start: 20211119
  24. INFLECTRA [Suspect]
     Active Substance: INFLIXIMAB-DYYB
     Dosage: 5 MG/KG (EVERY 4 WEEKS)
     Route: 042
     Dates: start: 20211217
  25. INFLECTRA [Suspect]
     Active Substance: INFLIXIMAB-DYYB
     Dosage: 5 MG/KG (EVERY 4 WEEKS)
     Route: 042
     Dates: start: 20220211
  26. INFLECTRA [Suspect]
     Active Substance: INFLIXIMAB-DYYB
     Dosage: 5 MG/KG (EVERY 4 WEEKS)
     Route: 042
     Dates: start: 20220311
  27. INFLECTRA [Suspect]
     Active Substance: INFLIXIMAB-DYYB
     Dosage: 5 MG/KG (EVERY 4 WEEKS)
     Route: 042
     Dates: start: 20220408
  28. ACETAMINOPHEN [Concomitant]
     Active Substance: ACETAMINOPHEN
     Indication: Premedication
     Dosage: 650 MG
     Dates: start: 20200329, end: 20200329
  29. ACETAMINOPHEN [Concomitant]
     Active Substance: ACETAMINOPHEN
     Dosage: 650 MG
     Route: 048
     Dates: start: 20200522, end: 20200522
  30. ACETAMINOPHEN [Concomitant]
     Active Substance: ACETAMINOPHEN
     Dosage: 650 MG
     Dates: start: 20200722, end: 20200722
  31. ACETAMINOPHEN [Concomitant]
     Active Substance: ACETAMINOPHEN
     Dosage: 650 MG
     Route: 048
     Dates: start: 20200911, end: 20200911
  32. ACETAMINOPHEN [Concomitant]
     Active Substance: ACETAMINOPHEN
     Dosage: 650 MG
     Route: 048
     Dates: start: 20201009, end: 20201009
  33. ACETAMINOPHEN [Concomitant]
     Active Substance: ACETAMINOPHEN
     Dosage: 650 MG
     Dates: start: 20210108, end: 20210108
  34. ACETAMINOPHEN [Concomitant]
     Active Substance: ACETAMINOPHEN
     Dosage: 650 MG
     Route: 048
     Dates: start: 20210409, end: 20210409
  35. ACETAMINOPHEN [Concomitant]
     Active Substance: ACETAMINOPHEN
     Dosage: 650 MG
     Route: 048
     Dates: start: 20210702, end: 20210702
  36. ACETAMINOPHEN [Concomitant]
     Active Substance: ACETAMINOPHEN
     Dosage: 650 MG
     Dates: start: 20220311, end: 20220311
  37. FOLIC ACID [Concomitant]
     Active Substance: FOLIC ACID
     Dosage: UNK, DOSE WEEKLY, DOSE UNKNOWN
     Route: 065
  38. HYDROCORTISONE [Concomitant]
     Active Substance: HYDROCORTISONE
     Indication: Premedication
     Dosage: 100 MG
     Route: 042
     Dates: start: 20200329, end: 20200329
  39. HYDROCORTISONE [Concomitant]
     Active Substance: HYDROCORTISONE
     Dosage: 100 MG
     Route: 042
     Dates: start: 20200522, end: 20200522
  40. HYDROCORTISONE [Concomitant]
     Active Substance: HYDROCORTISONE
     Dosage: 100 MG
     Route: 042
     Dates: start: 20200619, end: 20200619
  41. HYDROCORTISONE [Concomitant]
     Active Substance: HYDROCORTISONE
     Dosage: 100 MG
     Dates: start: 20200722, end: 20200722
  42. HYDROCORTISONE [Concomitant]
     Active Substance: HYDROCORTISONE
     Dosage: 100 MG
     Route: 042
     Dates: start: 20200911, end: 20200911
  43. HYDROCORTISONE [Concomitant]
     Active Substance: HYDROCORTISONE
     Dosage: 100 MG
     Route: 042
     Dates: start: 20201009, end: 20201009
  44. HYDROCORTISONE [Concomitant]
     Active Substance: HYDROCORTISONE
     Dosage: 100 MG
     Route: 042
     Dates: start: 20201106, end: 20201106
  45. HYDROCORTISONE [Concomitant]
     Active Substance: HYDROCORTISONE
     Dosage: 100 MG
     Dates: start: 20210108, end: 20210108
  46. HYDROCORTISONE [Concomitant]
     Active Substance: HYDROCORTISONE
     Dosage: 100 MG
     Route: 042
     Dates: start: 20210409, end: 20210409
  47. HYDROCORTISONE [Concomitant]
     Active Substance: HYDROCORTISONE
     Dosage: 100 MG
     Dates: start: 20210702, end: 20210702
  48. HYDROCORTISONE [Concomitant]
     Active Substance: HYDROCORTISONE
     Dosage: 100 MG
     Dates: start: 20220311, end: 20220311
  49. HYDROCHLOROTHIAZIDE [Concomitant]
     Active Substance: HYDROCHLOROTHIAZIDE
     Dosage: 1 DF, UNKNOWN DOSE
     Route: 065
  50. METHOTREXATE [Concomitant]
     Active Substance: METHOTREXATE
     Dosage: UNK, DOSE WEEKLY, DOSAGE UNKNOWN
     Route: 058
  51. RAMIPRIL [Concomitant]
     Active Substance: RAMIPRIL
     Dosage: 5 MG, UNK
     Route: 065
  52. TYLENOL [Concomitant]
     Active Substance: ACETAMINOPHEN
     Indication: Premedication
     Dosage: UNK
     Dates: start: 20201106, end: 20201106

REACTIONS (14)
  - Angioedema [Unknown]
  - Uveitis [Unknown]
  - Blood pressure increased [Unknown]
  - Heart rate irregular [Unknown]
  - Weight decreased [Recovering/Resolving]
  - Arthralgia [Not Recovered/Not Resolved]
  - Staphylococcal skin infection [Unknown]
  - Weight increased [Unknown]
  - Condition aggravated [Recovering/Resolving]
  - Hypertension [Unknown]
  - Arthralgia [Unknown]
  - Intentional product use issue [Unknown]
  - Off label use [Unknown]
  - Off label use [Unknown]

NARRATIVE: CASE EVENT DATE: 20200130
